FAERS Safety Report 18056906 (Version 1)
Quarter: 2020Q3

REPORT INFORMATION
  Report Type: Spontaneous
  Country: NL (occurrence: DE)
  Receive Date: 20200722
  Receipt Date: 20200722
  Transmission Date: 20201103
  Serious: Yes (Hospitalization, Other)
  Sender: FDA-Public Use
  Company Number: DE-FRESENIUS KABI-FK202007356

PATIENT
  Age: 70 Year
  Sex: Female
  Weight: 74 kg

DRUGS (4)
  1. GEMCITABINE. [Suspect]
     Active Substance: GEMCITABINE
     Indication: BREAST CANCER
     Dosage: 1014 MILLIGRAM (D8, 60 PERCENT)
     Route: 065
     Dates: start: 20200528, end: 20200528
  2. CARBOPLATIN (MANUFACTURER UNKNOWN) [Suspect]
     Active Substance: CARBOPLATIN
     Indication: BREAST CANCER
     Dosage: 460.5 MILLIGRAM (D1, D22)
     Route: 065
     Dates: start: 20200520, end: 20200520
  3. GEMCITABINE. [Suspect]
     Active Substance: GEMCITABINE
     Dosage: 1352 MILLIGRAM (D1, 80 PERCENT)
     Route: 065
     Dates: start: 20200520, end: 20200520
  4. PEGFILGRASTIM [Suspect]
     Active Substance: PEGFILGRASTIM
     Indication: PROPHYLAXIS
     Dosage: 6 MILLIGRAM, AFTER CHEMO
     Route: 058
     Dates: start: 20200521

REACTIONS (5)
  - Febrile neutropenia [Recovered/Resolved]
  - Thrombocytopenia [Recovered/Resolved]
  - Adverse drug reaction [Unknown]
  - Therapeutic product effect decreased [Unknown]
  - Leukopenia [Recovered/Resolved]

NARRATIVE: CASE EVENT DATE: 2020
